FAERS Safety Report 5907812-3 (Version None)
Quarter: 2008Q4

REPORT INFORMATION
  Report Type: 
  Country: None (occurrence: None)
  Receive Date: 20081003
  Receipt Date: 20080923
  Transmission Date: 20090506
  Serious: Yes (Hospitalization)
  Sender: FDA-Public Use
  Company Number: US-SANOFI-SYNTHELABO-A01200811666

PATIENT
  Sex: Female
  Weight: 74.8 kg

DRUGS (6)
  1. ASPIRIN [Suspect]
     Indication: ANALGESIA
     Route: 065
     Dates: start: 20060101, end: 20080903
  2. ASPIRIN [Suspect]
     Indication: PROPHYLAXIS
     Route: 065
     Dates: start: 20060101, end: 20080903
  3. ASPIRIN [Suspect]
     Dosage: 325 MG DAILY + 325 MG AS NEEDED
     Route: 065
     Dates: start: 20060101, end: 20080903
  4. ASPIRIN [Suspect]
     Dosage: 325 MG DAILY + 325 MG AS NEEDED
     Route: 065
     Dates: start: 20060101, end: 20080903
  5. CELECOXIB [Suspect]
     Indication: DRUG USE FOR UNKNOWN INDICATION
     Dosage: UNK
     Route: 065
     Dates: end: 20080903
  6. PLAVIX [Suspect]
     Indication: DRUG USE FOR UNKNOWN INDICATION
     Dosage: UNK
     Route: 048
     Dates: end: 20080903

REACTIONS (6)
  - BLOOD PRESSURE INCREASED [None]
  - CARDIAC OPERATION [None]
  - CONTUSION [None]
  - EPISTAXIS [None]
  - HEART RATE INCREASED [None]
  - PALPITATIONS [None]
